FAERS Safety Report 10230766 (Version 1)
Quarter: 2014Q2

REPORT INFORMATION
  Report Type: Spontaneous
  Country: US (occurrence: None)
  Receive Date: 20140610
  Receipt Date: 20140610
  Transmission Date: 20141212
  Serious: No
  Sender: FDA-Public Use
  Company Number: None

PATIENT
  Age: 37 Year
  Sex: Male
  Weight: 159.21 kg

DRUGS (1)
  1. ABILIFY 10 MG [Suspect]
     Indication: BIPOLAR DISORDER
     Dosage: ONE PILL ONCE DAILY TAKEN BY MOUTH
     Route: 048
     Dates: start: 20140425, end: 20140606

REACTIONS (4)
  - Anxiety [None]
  - Palpitations [None]
  - Blood pressure increased [None]
  - Fatigue [None]
